FAERS Safety Report 21265555 (Version 1)
Quarter: 2022Q3

REPORT INFORMATION
  Report Type: Spontaneous
  Country: US (occurrence: None)
  Receive Date: 20220827
  Receipt Date: 20220827
  Transmission Date: 20221026
  Serious: Yes (Disabling, Other)
  Sender: FDA-Public Use
  Company Number: None

PATIENT
  Age: 62 Year
  Sex: Female
  Weight: 57.6 kg

DRUGS (10)
  1. ROSUVASTATIN CALCIUM [Suspect]
     Active Substance: ROSUVASTATIN CALCIUM
     Dosage: OTHER QUANTITY : .5 TABLET(S);?FREQUENCY : DAILY;?
     Route: 048
  2. norvasc 5 mg twice daily [Concomitant]
  3. CREON [Concomitant]
     Active Substance: PANCRELIPASE AMYLASE\PANCRELIPASE LIPASE\PANCRELIPASE PROTEASE
  4. Levothyroxine; cpap machine [Concomitant]
  5. VITAMIN D3 [Concomitant]
     Active Substance: CHOLECALCIFEROL
  6. MAGNESIUM CITRATE [Concomitant]
     Active Substance: MAGNESIUM CITRATE
  7. PROBIOTICS NOS [Concomitant]
     Active Substance: PROBIOTICS NOS
  8. CALCIUM CITRATE [Concomitant]
     Active Substance: CALCIUM CITRATE
  9. POTASSIUM CITRATE [Concomitant]
     Active Substance: POTASSIUM CITRATE
  10. Flintstone Vit [Concomitant]

REACTIONS (3)
  - Muscle spasms [None]
  - Abdominal rigidity [None]
  - Tendon rupture [None]

NARRATIVE: CASE EVENT DATE: 20220322
